FAERS Safety Report 6050064-7 (Version None)
Quarter: 2009Q1

REPORT INFORMATION
  Report Type: 
  Country: None (occurrence: None)
  Receive Date: 20090126
  Receipt Date: 20090119
  Transmission Date: 20090719
  Serious: Yes (Hospitalization, Other)
  Sender: FDA-Public Use
  Company Number: FR-BRISTOL-MYERS SQUIBB COMPANY-14477996

PATIENT
  Age: 66 Year
  Sex: Male

DRUGS (3)
  1. REYATAZ [Suspect]
     Indication: HIV INFECTION
     Dates: start: 20071227, end: 20080421
  2. NORVIR [Suspect]
     Indication: HIV INFECTION
     Dates: start: 20071227, end: 20080421
  3. TRUVADA [Suspect]
     Indication: HIV INFECTION
     Dates: start: 20071227, end: 20080421

REACTIONS (2)
  - DIABETIC MACROANGIOPATHY [None]
  - RENAL FAILURE [None]
